FAERS Safety Report 13577045 (Version 1)
Quarter: 2017Q2

REPORT INFORMATION
  Report Type: Spontaneous
  Country: BR (occurrence: BR)
  Receive Date: 20170524
  Receipt Date: 20170524
  Transmission Date: 20170830
  Serious: Yes (Hospitalization)
  Sender: FDA-Public Use
  Company Number: BR-PFIZER INC-2017221499

PATIENT
  Age: 88 Year
  Sex: Female

DRUGS (1)
  1. LIPITOR [Suspect]
     Active Substance: ATORVASTATIN CALCIUM
     Dosage: UNK

REACTIONS (4)
  - Infarction [Unknown]
  - Cerebrovascular accident [Unknown]
  - Sepsis [Unknown]
  - Oedema [Unknown]

NARRATIVE: CASE EVENT DATE: 2011
